FAERS Safety Report 22907833 (Version 5)
Quarter: 2023Q4

REPORT INFORMATION
  Report Type: Spontaneous
  Country: JP (occurrence: None)
  Receive Date: 20230905
  Receipt Date: 20231024
  Transmission Date: 20240109
  Serious: Yes (Death, Disabling, Other)
  Sender: FDA-Public Use
  Company Number: 2023A199245

PATIENT
  Age: 75 Year
  Sex: Male

DRUGS (3)
  1. ONDEXXYA [Suspect]
     Active Substance: ANDEXANET ALFA
     Indication: Traumatic intracranial haemorrhage
     Dosage: 880.0MG UNKNOWN
     Route: 042
     Dates: start: 20230816, end: 20230816
  2. ELIQUIS [Concomitant]
     Active Substance: APIXABAN
     Indication: Ischaemic stroke
     Route: 048
  3. ELIQUIS [Concomitant]
     Active Substance: APIXABAN
     Indication: Ischaemic stroke
     Route: 048
     Dates: start: 20230818

REACTIONS (4)
  - Haemorrhagic cerebral infarction [Not Recovered/Not Resolved]
  - Subdural haematoma [Unknown]
  - Pneumonia staphylococcal [Fatal]
  - Staphylococcal bacteraemia [Unknown]

NARRATIVE: CASE EVENT DATE: 20230816
